FAERS Safety Report 18587360 (Version 1)
Quarter: 2020Q4

REPORT INFORMATION
  Report Type: Spontaneous
  Country: KR (occurrence: KR)
  Receive Date: 20201207
  Receipt Date: 20201207
  Transmission Date: 20210114
  Serious: Yes (Hospitalization, Other)
  Sender: FDA-Public Use
  Company Number: KR-SEATTLE GENETICS-2020SGN05363

PATIENT

DRUGS (1)
  1. ADCETRIS [Suspect]
     Active Substance: BRENTUXIMAB VEDOTIN
     Indication: HODGKIN^S DISEASE UNCLASSIFIABLE
     Dosage: UNK
     Route: 050
     Dates: start: 20190911

REACTIONS (2)
  - Systemic candida [Unknown]
  - Pseudomembranous colitis [Unknown]
